FAERS Safety Report 16119406 (Version 4)
Quarter: 2019Q2

REPORT INFORMATION
  Report Type: Spontaneous
  Country: US (occurrence: US)
  Receive Date: 20190326
  Receipt Date: 20190422
  Transmission Date: 20190711
  Serious: No
  Sender: FDA-Public Use
  Company Number: US-GLAXOSMITHKLINE-US2019051616

PATIENT
  Sex: Female

DRUGS (1)
  1. VENTOLIN HFA [Suspect]
     Active Substance: ALBUTEROL SULFATE
     Indication: PRODUCT USED FOR UNKNOWN INDICATION
     Dosage: 2 PUFF(S), QID
     Route: 055

REACTIONS (6)
  - Cough [Unknown]
  - Product dose omission [Unknown]
  - Product complaint [Unknown]
  - Pharyngitis [Unknown]
  - Oropharyngeal pain [Unknown]
  - Stress [Unknown]
